FAERS Safety Report 10066961 (Version 1)
Quarter: 2014Q2

REPORT INFORMATION
  Report Type: Spontaneous
  Country: JP (occurrence: JP)
  Receive Date: 20140409
  Receipt Date: 20140409
  Transmission Date: 20141212
  Serious: Yes (Other)
  Sender: FDA-Public Use
  Company Number: JP-PFIZER INC-2014097323

PATIENT
  Age: 26 Year
  Sex: Female

DRUGS (2)
  1. GENOTROPIN TC [Suspect]
     Indication: GROWTH HORMONE DEFICIENCY
     Dosage: 9.8 MG, WEEKLY
     Route: 058
     Dates: start: 20070116
  2. GENOTROPIN TC [Suspect]
     Dosage: 19.6 MG, WEEKLY
     Route: 058
     Dates: start: 20070312

REACTIONS (1)
  - Suicide attempt [Recovered/Resolved]
